FAERS Safety Report 12435273 (Version 1)
Quarter: 2016Q2

REPORT INFORMATION
  Report Type: Spontaneous
  Country: US (occurrence: US)
  Receive Date: 20160603
  Receipt Date: 20160603
  Transmission Date: 20160815
  Serious: No
  Sender: FDA-Public Use
  Company Number: US-ROCHE-1740502

PATIENT
  Age: 57 Year
  Sex: Female
  Weight: 52.21 kg

DRUGS (1)
  1. ACTEMRA [Suspect]
     Active Substance: TOCILIZUMAB
     Indication: RHEUMATOID ARTHRITIS
     Dosage: EVERY 2 WEEKS
     Route: 058
     Dates: start: 20160210

REACTIONS (2)
  - Pain [Unknown]
  - Peripheral swelling [Unknown]

NARRATIVE: CASE EVENT DATE: 201603
